FAERS Safety Report 6519321-1 (Version None)
Quarter: 2009Q4

REPORT INFORMATION
  Report Type: 
  Country: None (occurrence: None)
  Receive Date: 20091228
  Receipt Date: 20091221
  Transmission Date: 20100525
  Serious: Yes (Death, Hospitalization)
  Sender: FDA-Public Use
  Company Number: JP-BAYER-200915113BYL

PATIENT
  Age: 71 Year
  Sex: Male
  Weight: 53 kg

DRUGS (12)
  1. NEXAVAR [Suspect]
     Indication: HEPATIC NEOPLASM MALIGNANT
     Dosage: TOTAL DAILY DOSE: 800 MG  UNIT DOSE: 200 MG
     Route: 048
     Dates: start: 20091008, end: 20091112
  2. NEXAVAR [Suspect]
     Dosage: TOTAL DAILY DOSE: 400 MG  UNIT DOSE: 200 MG
     Route: 048
     Dates: start: 20091113, end: 20091113
  3. TRIAMTERENE [Concomitant]
     Route: 048
  4. URSO 250 [Concomitant]
     Route: 048
  5. TAMBOCOR [Concomitant]
     Route: 048
  6. ATARAX [Concomitant]
     Route: 048
     Dates: start: 20091112
  7. ALDACTONE [Concomitant]
     Route: 048
     Dates: start: 20091109
  8. ALDACTONE [Concomitant]
     Route: 048
     Dates: start: 20091023, end: 20091108
  9. KINDAVATE [Concomitant]
     Indication: PRURITUS
     Route: 061
     Dates: start: 20091023
  10. CONTOMIN [Concomitant]
     Route: 048
     Dates: start: 20091113
  11. PRIMPERAN TAB [Concomitant]
     Route: 065
     Dates: start: 20091113, end: 20091113
  12. FLOMOX [Concomitant]
     Route: 048
     Dates: start: 20091013, end: 20091016

REACTIONS (9)
  - ASCITES [None]
  - COUGH [None]
  - DIARRHOEA [None]
  - DYSPHONIA [None]
  - HEPATIC FAILURE [None]
  - HICCUPS [None]
  - HYPERTENSION [None]
  - PRURITUS [None]
  - PYREXIA [None]
